FAERS Safety Report 7537932-1 (Version None)
Quarter: 2011Q2

REPORT INFORMATION
  Report Type: 
  Country: None (occurrence: None)
  Receive Date: 20110609
  Receipt Date: 20110525
  Transmission Date: 20111010
  Serious: Yes (Hospitalization)
  Sender: FDA-Public Use
  Company Number: DE-UCBSA-030686

PATIENT
  Sex: Male
  Weight: 98.5 kg

DRUGS (21)
  1. VOTUM [Concomitant]
     Indication: HYPERTENSION
     Dates: start: 20050101, end: 20110215
  2. SIMVASTATIN [Concomitant]
     Indication: BLOOD CHOLESTEROL INCREASED
  3. ISOSORBIDE DINITRATE [Concomitant]
     Indication: CORONARY ARTERY DISEASE
     Dates: start: 20050101
  4. BISOPOROL [Concomitant]
     Indication: HYPERTENSION
     Dates: start: 20050101, end: 20110501
  5. GLIMEPIRID [Concomitant]
     Indication: TYPE 2 DIABETES MELLITUS
     Dates: start: 20050101
  6. VIMPAT [Suspect]
     Indication: EPILEPSY
     Route: 048
     Dates: start: 20110114, end: 20110101
  7. ASPIRIN [Concomitant]
     Indication: CORONARY ARTERY DISEASE
     Dates: start: 20110501
  8. PANTOPRAZOLE [Concomitant]
     Indication: ANTACID THERAPY
     Dates: start: 20110501
  9. VIMPAT [Suspect]
     Dosage: MORNING AND EVENING: 100 MG
     Route: 048
     Dates: start: 20110204
  10. DIOVAN [Concomitant]
     Indication: HYPERTENSION
     Dates: start: 20110501
  11. RANEXA [Concomitant]
     Indication: ANGINA PECTORIS
     Dosage: 2X2
     Dates: start: 20110501
  12. VIMPAT [Suspect]
     Dosage: MORNING : 100 MG AND EVENING: 50 MG
     Route: 048
     Dates: start: 20110128, end: 20110101
  13. TORSEMIDE [Concomitant]
     Indication: HYPERTENSION
     Dates: start: 20050101
  14. CLOPIDOGREL [Concomitant]
     Indication: ANTICOAGULANT THERAPY
     Dates: start: 20110501
  15. VOTUM [Concomitant]
     Dates: start: 20110215
  16. VIMPAT [Suspect]
     Dosage: MORNING AND EVENING
     Route: 048
     Dates: start: 20110121, end: 20110101
  17. LAMOTRIGINE [Concomitant]
     Indication: EPILEPSY
     Dates: start: 20080101
  18. PARAVASTATIN [Concomitant]
     Indication: HYPERURICAEMIA
     Dosage: 1 TABLET DAILY
     Dates: start: 20040101
  19. NOVAMINSULFON [Concomitant]
     Indication: PAIN
     Dates: start: 20110501
  20. ALLO [Concomitant]
     Indication: HYPERTENSION
     Dates: start: 20050101
  21. VOLTAREN [Concomitant]
     Indication: PAIN
     Dates: start: 20110501

REACTIONS (4)
  - SYNCOPE [None]
  - ANGINA PECTORIS [None]
  - BRAIN STEM ISCHAEMIA [None]
  - DIZZINESS [None]
